FAERS Safety Report 9102104 (Version 2)
Quarter: 2013Q2

REPORT INFORMATION
  Report Type: Spontaneous
  Country: NO (occurrence: NO)
  Receive Date: 20130218
  Receipt Date: 20130424
  Transmission Date: 20140414
  Serious: Yes (Hospitalization)
  Sender: FDA-Public Use
  Company Number: NO-ELI_LILLY_AND_COMPANY-NO201302002916

PATIENT
  Sex: Female

DRUGS (1)
  1. FONTEX [Suspect]
     Indication: DEPRESSION
     Dosage: 1 DF, UNKNOWN
     Dates: start: 2005

REACTIONS (3)
  - Muscle twitching [Not Recovered/Not Resolved]
  - Influenza [Unknown]
  - Pyrexia [Unknown]
